FAERS Safety Report 20166502 (Version 1)
Quarter: 2021Q4

REPORT INFORMATION
  Report Type: Report from Study
  Country: PK (occurrence: PK)
  Receive Date: 20211209
  Receipt Date: 20211209
  Transmission Date: 20220303
  Serious: Yes (Death)
  Sender: FDA-Public Use
  Company Number: PK-NOVARTISPH-NVSC2021PK282184

PATIENT
  Age: 88 Year
  Sex: Male
  Weight: 58 kg

DRUGS (1)
  1. GLIVEC [Suspect]
     Active Substance: IMATINIB MESYLATE
     Indication: Chronic myeloid leukaemia
     Dosage: 100 MG, BID (2 TABLETS)
     Route: 048
     Dates: start: 20191219, end: 20210420

REACTIONS (1)
  - Death [Fatal]

NARRATIVE: CASE EVENT DATE: 20210825
